FAERS Safety Report 8238836-1 (Version None)
Quarter: 2012Q1

REPORT INFORMATION
  Report Type: 
  Country: None (occurrence: None)
  Receive Date: 20120327
  Receipt Date: 20120322
  Transmission Date: 20120608
  Serious: Yes (Life-Threatening, Hospitalization)
  Sender: FDA-Public Use
  Company Number: CA-CELGENEUS-028-21880-12032584

PATIENT
  Sex: Male

DRUGS (6)
  1. DEXAMETHASONE [Concomitant]
     Route: 065
  2. COD LIVER OIL [Concomitant]
     Route: 065
  3. REVLIMID [Suspect]
     Indication: MULTIPLE MYELOMA
     Dosage: 25 MILLIGRAM
     Route: 048
     Dates: start: 20120301, end: 20120321
  4. VITAMIN D [Concomitant]
     Route: 065
  5. ASPIRIN [Concomitant]
     Route: 065
  6. ASCORBIC ACID [Concomitant]
     Route: 065

REACTIONS (4)
  - HEART RATE INCREASED [None]
  - COUGH [None]
  - LETHARGY [None]
  - DYSPNOEA [None]
